FAERS Safety Report 5449449-9 (Version None)
Quarter: 2007Q3

REPORT INFORMATION
  Report Type: 
  Country: None (occurrence: None)
  Receive Date: 20070907
  Receipt Date: 20070831
  Transmission Date: 20080115
  Serious: Yes (Death, Hospitalization)
  Sender: FDA-Public Use
  Company Number: 028-C5013-07090035

PATIENT
  Age: 70 Year
  Sex: Female
  Weight: 66.5 kg

DRUGS (1)
  1. CC-5013 (LENALIDOMIDE) (CAPSULES) [Suspect]
     Indication: NON-HODGKIN'S LYMPHOMA
     Dosage: 25 MG, OD X 21 DAYS Q 28 DAYS, ORAL
     Route: 048
     Dates: start: 20070824, end: 20070827

REACTIONS (17)
  - CARDIAC ANEURYSM [None]
  - CARDIAC ARREST [None]
  - CEREBELLAR INFARCTION [None]
  - DEEP VEIN THROMBOSIS [None]
  - DEPRESSED LEVEL OF CONSCIOUSNESS [None]
  - HYPERCALCAEMIA [None]
  - INTRACARDIAC THROMBUS [None]
  - LUNG CONSOLIDATION [None]
  - LYMPHADENOPATHY [None]
  - LYMPHOMA [None]
  - MALIGNANT PLEURAL EFFUSION [None]
  - PERICARDIAL DISEASE [None]
  - PERICARDIAL EFFUSION [None]
  - PLEURAL EFFUSION [None]
  - PULMONARY EMBOLISM [None]
  - PULMONARY OEDEMA [None]
  - TUMOUR INVASION [None]
